FAERS Safety Report 5453115-3 (Version None)
Quarter: 2007Q3

REPORT INFORMATION
  Report Type: 
  Country: None (occurrence: None)
  Receive Date: 20070914
  Receipt Date: 20070903
  Transmission Date: 20080115
  Serious: Yes (Life-Threatening)
  Sender: FDA-Public Use
  Company Number: FR-PFIZER INC-2007073713

PATIENT
  Sex: Male

DRUGS (5)
  1. XANAX [Suspect]
     Indication: SCHIZOPHRENIA, PARANOID TYPE
     Route: 048
  2. RISPERDAL [Suspect]
     Indication: SCHIZOPHRENIA, PARANOID TYPE
     Dosage: DAILY DOSE:6MG
     Route: 048
  3. CYAMEMAZINE [Suspect]
     Indication: SCHIZOPHRENIA, PARANOID TYPE
     Route: 048
  4. TROPATEPINE HYDROCHLORIDE [Concomitant]
     Indication: SCHIZOPHRENIA, PARANOID TYPE
     Route: 048
  5. CITALOPRAM HYDROBROMIDE [Concomitant]
     Indication: DEPRESSION
     Route: 048
     Dates: start: 20050711

REACTIONS (2)
  - DEPRESSION [None]
  - DYSPHAGIA [None]
